FAERS Safety Report 9749894 (Version 1)
Quarter: 2013Q4

REPORT INFORMATION
  Report Type: Spontaneous
  Country: CO (occurrence: CO)
  Receive Date: 20131212
  Receipt Date: 20131212
  Transmission Date: 20140711
  Serious: Yes (Death)
  Sender: FDA-Public Use
  Company Number: CO-PFIZER INC-2013355376

PATIENT
  Sex: Male

DRUGS (1)
  1. CARDURAN [Suspect]
     Dosage: 4 MG, ONCE DAILY
     Route: 048

REACTIONS (1)
  - Death [Fatal]
